FAERS Safety Report 12601728 (Version 1)
Quarter: 2016Q3

REPORT INFORMATION
  Report Type: Spontaneous
  Country: US (occurrence: US)
  Receive Date: 20160728
  Receipt Date: 20160728
  Transmission Date: 20161109
  Serious: Yes (Other)
  Sender: FDA-Public Use
  Company Number: US-SA-2016SA133574

PATIENT
  Age: 22 Year
  Sex: Female

DRUGS (1)
  1. ICY HOT MEDICATED NO MESS APPLICATOR [Suspect]
     Active Substance: MENTHOL
     Indication: BACK PAIN
     Route: 061
     Dates: start: 20160718, end: 20160718

REACTIONS (4)
  - Burning sensation [Unknown]
  - Application site pain [Unknown]
  - Burns second degree [Unknown]
  - Application site scar [Unknown]

NARRATIVE: CASE EVENT DATE: 20160718
